FAERS Safety Report 5945913-4 (Version None)
Quarter: 2008Q4

REPORT INFORMATION
  Report Type: 
  Country: None (occurrence: None)
  Receive Date: 20081105
  Receipt Date: 20081027
  Transmission Date: 20090506
  Serious: Yes (Other)
  Sender: FDA-Public Use
  Company Number: B0544601A

PATIENT
  Age: 39 Year
  Sex: Male

DRUGS (3)
  1. AMOXICILLIN TRIHYDRATE [Suspect]
     Indication: GASTRIC ULCER
     Dates: start: 20070411
  2. CLARITHROMYCIN [Concomitant]
  3. OMEPRAZOLE [Concomitant]

REACTIONS (3)
  - ERYTHEMA [None]
  - FACE OEDEMA [None]
  - PHOTOSENSITIVITY REACTION [None]
